FAERS Safety Report 11471848 (Version 1)
Quarter: 2015Q3

REPORT INFORMATION
  Report Type: Other
  Country: CA (occurrence: CA)
  Receive Date: 20150908
  Receipt Date: 20150908
  Transmission Date: 20151125
  Serious: Yes (Other)
  Sender: FDA-Public Use
  Company Number: CA-APOTEX-2015AP012347

PATIENT
  Age: 72 Year
  Sex: Male
  Weight: 73 kg

DRUGS (1)
  1. APO-VALACYCLOVIR [Suspect]
     Active Substance: VALACYCLOVIR HYDROCHLORIDE
     Indication: HERPES ZOSTER
     Dosage: 1000 MG, TID
     Route: 048

REACTIONS (11)
  - Decreased appetite [Recovered/Resolved]
  - Agitation [Recovered/Resolved]
  - Confusional state [Recovered/Resolved]
  - Fatigue [Recovered/Resolved]
  - Vision blurred [Recovered/Resolved]
  - Headache [Recovered/Resolved]
  - Nausea [Recovered/Resolved]
  - Mood altered [Recovered/Resolved]
  - Pruritus [Recovered/Resolved]
  - Xanthopsia [Recovered/Resolved]
  - Abdominal discomfort [Recovered/Resolved]
